FAERS Safety Report 7540335-7 (Version None)
Quarter: 2011Q2

REPORT INFORMATION
  Report Type: 
  Country: None (occurrence: None)
  Receive Date: 20110610
  Receipt Date: 20040812
  Transmission Date: 20111010
  Serious: Yes (Death, Other)
  Sender: FDA-Public Use
  Company Number: PHFR2004GB02546

PATIENT
  Sex: Male

DRUGS (2)
  1. CLOZAPINE [Suspect]
     Indication: SCHIZOPHRENIA
     Dosage: 900 MG/DAY
     Route: 048
     Dates: start: 19900612
  2. VINCRISTINE [Concomitant]
     Dates: start: 20040809

REACTIONS (4)
  - HAEMOGLOBIN DECREASED [None]
  - AGRANULOCYTOSIS [None]
  - LOWER RESPIRATORY TRACT INFECTION [None]
  - B-CELL LYMPHOMA [None]
